FAERS Safety Report 9617896 (Version 1)
Quarter: 2013Q4

REPORT INFORMATION
  Report Type: Spontaneous
  Country: GB (occurrence: GB)
  Receive Date: 20131011
  Receipt Date: 20131011
  Transmission Date: 20140711
  Serious: Yes (Life-Threatening)
  Sender: FDA-Public Use
  Company Number: GB-ACTAVIS-2013-18245

PATIENT
  Age: 75 Year
  Sex: Female
  Weight: 64 kg

DRUGS (2)
  1. PACLITAXEL (UNKNOWN) [Suspect]
     Indication: CHEMOTHERAPY
     Dosage: 114 MG, UNKNOWN
     Route: 042
     Dates: start: 20130912, end: 20130912
  2. METOCLOPRAMIDE HYDROCHLORIDE [Concomitant]
     Indication: PRODUCT USED FOR UNKNOWN INDICATION
     Dosage: UNK
     Route: 065

REACTIONS (3)
  - Unresponsive to stimuli [Recovered/Resolved]
  - Erythema [Unknown]
  - Swelling face [Unknown]
